FAERS Safety Report 18434252 (Version 3)
Quarter: 2023Q1

REPORT INFORMATION
  Report Type: Other
  Country: US (occurrence: None)
  Receive Date: 20201028
  Receipt Date: 20230106
  Transmission Date: 20230418
  Serious: Yes (Other)
  Sender: FDA-Public Use
  Company Number: US-ROCHE-2703503

PATIENT
  Age: 25 Year
  Sex: Male

DRUGS (2)
  1. RITUXIMAB [Suspect]
     Active Substance: RITUXIMAB
     Indication: Relapsing-remitting multiple sclerosis
     Route: 042
  2. FINGOLIMOD [Concomitant]
     Active Substance: FINGOLIMOD

REACTIONS (4)
  - Pyoderma gangrenosum [Recovered/Resolved]
  - Neurogenic bladder [Recovered/Resolved]
  - Urinary tract infection [Recovered/Resolved]
  - Abscess [Recovered/Resolved]
